FAERS Safety Report 5940547-X (Version None)
Quarter: 2008Q4

REPORT INFORMATION
  Report Type: 
  Country: None (occurrence: None)
  Receive Date: 20081104
  Receipt Date: 20081029
  Transmission Date: 20090506
  Serious: Yes (Disabling)
  Sender: FDA-Public Use
  Company Number: MY-MERCK-0810MYS00014

PATIENT
  Age: 91 Year
  Sex: Male

DRUGS (3)
  1. PROSCAR [Suspect]
     Indication: URINARY INCONTINENCE
     Route: 048
     Dates: start: 20081009, end: 20081022
  2. PROSCAR [Suspect]
     Route: 048
     Dates: start: 20081023, end: 20081029
  3. TERAZOSIN HYDROCHLORIDE [Concomitant]
     Indication: BENIGN PROSTATIC HYPERPLASIA
     Route: 048

REACTIONS (2)
  - FAECAL INCONTINENCE [None]
  - WRONG TECHNIQUE IN DRUG USAGE PROCESS [None]
